FAERS Safety Report 11759053 (Version 1)
Quarter: 2015Q4

REPORT INFORMATION
  Report Type: Spontaneous
  Country: US (occurrence: US)
  Receive Date: 20151120
  Receipt Date: 20151120
  Transmission Date: 20160304
  Serious: No
  Sender: FDA-Public Use
  Company Number: US-JNJFOC-20150923201

PATIENT
  Age: 42 Year
  Sex: Female

DRUGS (5)
  1. PROGESTERONE. [Concomitant]
     Active Substance: PROGESTERONE
     Indication: MENOPAUSE
     Dosage: FOR 3 YEARS
     Route: 065
  2. WOMENS ROGAINE UNSCENTED [Suspect]
     Active Substance: MINOXIDIL
     Indication: ANDROGENETIC ALOPECIA
     Dosage: 3/4 CAPFUL ONCE AT NIGHT
     Route: 061
  3. ESTROGEN [Concomitant]
     Active Substance: ESTRONE\SUS SCROFA OVARY
     Indication: MENOPAUSE
     Dosage: FOR 3 YEARS
     Route: 065
  4. WOMENS ROGAINE UNSCENTED [Suspect]
     Active Substance: MINOXIDIL
     Route: 061
  5. NEXIUM [Concomitant]
     Active Substance: ESOMEPRAZOLE MAGNESIUM
     Indication: GASTROOESOPHAGEAL REFLUX DISEASE
     Dosage: FOR 5 YEARS PLUS
     Route: 065

REACTIONS (4)
  - Incorrect dose administered [Not Recovered/Not Resolved]
  - Product quality issue [Unknown]
  - Hair growth abnormal [Not Recovered/Not Resolved]
  - Medication residue present [Not Recovered/Not Resolved]
